FAERS Safety Report 13220337 (Version 8)
Quarter: 2018Q4

REPORT INFORMATION
  Report Type: Spontaneous
  Country: US (occurrence: US)
  Receive Date: 20170210
  Receipt Date: 20181207
  Transmission Date: 20190204
  Serious: Yes (Hospitalization, Congenital Anomaly, Other)
  Sender: FDA-Public Use
  Company Number: US-ASTRAZENECA-2017SE12008

PATIENT
  Age: 58 Year
  Sex: Female
  Weight: 93.4 kg

DRUGS (71)
  1. NEXIUM [Suspect]
     Active Substance: ESOMEPRAZOLE MAGNESIUM
     Indication: DYSPEPSIA
     Route: 048
     Dates: start: 200811
  2. NEXIUM [Suspect]
     Active Substance: ESOMEPRAZOLE MAGNESIUM
     Indication: GASTROOESOPHAGEAL REFLUX DISEASE
     Route: 048
     Dates: start: 20140205
  3. NEXIUM [Suspect]
     Active Substance: ESOMEPRAZOLE MAGNESIUM
     Indication: GASTROOESOPHAGEAL REFLUX DISEASE
     Dosage: GENERIC
     Route: 048
  4. DIOVAN [Concomitant]
     Active Substance: VALSARTAN
     Dates: start: 2011
  5. TYLENOL [Concomitant]
     Active Substance: ACETAMINOPHEN
     Dates: start: 20131105
  6. FENTANYL. [Concomitant]
     Active Substance: FENTANYL
  7. FIORICET [Concomitant]
     Active Substance: ACETAMINOPHEN\BUTALBITAL\CAFFEINE
  8. MOBIC [Concomitant]
     Active Substance: MELOXICAM
  9. NEXIUM [Suspect]
     Active Substance: ESOMEPRAZOLE MAGNESIUM
     Indication: GASTROOESOPHAGEAL REFLUX DISEASE
     Route: 048
     Dates: start: 20090616, end: 20150715
  10. PROTONIX [Suspect]
     Active Substance: PANTOPRAZOLE SODIUM
     Indication: GASTROOESOPHAGEAL REFLUX DISEASE
     Route: 065
     Dates: start: 20130208, end: 20150717
  11. PROTONIX [Suspect]
     Active Substance: PANTOPRAZOLE SODIUM
     Indication: GASTROOESOPHAGEAL REFLUX DISEASE
     Route: 048
     Dates: start: 20131104
  12. LOSARTAN. [Concomitant]
     Active Substance: LOSARTAN
     Dosage: 100.0MG UNKNOWN
     Dates: start: 20131118
  13. CRESTOR [Concomitant]
     Active Substance: ROSUVASTATIN CALCIUM
     Dosage: 20.0MG UNKNOWN
     Dates: start: 20140609
  14. CITALOPRAM [Concomitant]
     Active Substance: CITALOPRAM HYDROBROMIDE
  15. LORTAB [Concomitant]
     Active Substance: ACETAMINOPHEN\HYDROCODONE BITARTRATE
     Dates: start: 20131104
  16. ZOFRAN [Concomitant]
     Active Substance: ONDANSETRON HYDROCHLORIDE
     Dates: start: 20131105
  17. ENALAPRIL [Concomitant]
     Active Substance: ENALAPRIL
     Dates: start: 20130120
  18. LOVASTATIN. [Concomitant]
     Active Substance: LOVASTATIN
  19. CIPROFLOXACIN. [Concomitant]
     Active Substance: CIPROFLOXACIN
  20. EZETIMIBE. [Concomitant]
     Active Substance: EZETIMIBE
  21. ATORVASTATIN [Concomitant]
     Active Substance: ATORVASTATIN
  22. NEXIUM [Suspect]
     Active Substance: ESOMEPRAZOLE MAGNESIUM
     Indication: DYSPEPSIA
     Route: 048
     Dates: start: 20140205
  23. PROTONIX [Suspect]
     Active Substance: PANTOPRAZOLE SODIUM
     Indication: DYSPEPSIA
     Route: 048
     Dates: start: 20131104
  24. ULTRAM [Concomitant]
     Active Substance: TRAMADOL HYDROCHLORIDE
  25. PROPOFOL. [Concomitant]
     Active Substance: PROPOFOL
  26. TRAMADOL. [Concomitant]
     Active Substance: TRAMADOL
  27. DIAZEPAM. [Concomitant]
     Active Substance: DIAZEPAM
  28. VALIUM [Concomitant]
     Active Substance: DIAZEPAM
  29. ROPINIROLE. [Concomitant]
     Active Substance: ROPINIROLE
  30. METRONIDAZOLE. [Concomitant]
     Active Substance: METRONIDAZOLE
  31. ALLOPURINOL. [Concomitant]
     Active Substance: ALLOPURINOL
     Dates: start: 20180802
  32. PEPCID [Concomitant]
     Active Substance: FAMOTIDINE
  33. NEXIUM [Suspect]
     Active Substance: ESOMEPRAZOLE MAGNESIUM
     Indication: GASTROOESOPHAGEAL REFLUX DISEASE
     Route: 048
     Dates: start: 200811
  34. ESGIC [Concomitant]
     Active Substance: ACETAMINOPHEN\BUTALBITAL\CAFFEINE
     Dates: start: 20131104
  35. GLIMEPIRIDE. [Concomitant]
     Active Substance: GLIMEPIRIDE
     Dates: start: 20130120
  36. VERSED [Concomitant]
     Active Substance: MIDAZOLAM HYDROCHLORIDE
  37. DEMEROL [Concomitant]
     Active Substance: MEPERIDINE HYDROCHLORIDE
  38. PROTONIX [Suspect]
     Active Substance: PANTOPRAZOLE SODIUM
     Indication: DYSPEPSIA
     Route: 065
     Dates: start: 20130208, end: 20150717
  39. AMITRIPTYLINE [Concomitant]
     Active Substance: AMITRIPTYLINE
     Dosage: 50.0MG UNKNOWN
     Dates: start: 20140218
  40. NOVOLOG [Concomitant]
     Active Substance: INSULIN ASPART
     Dosage: 100 U, UNKNOWN
  41. COREG [Concomitant]
     Active Substance: CARVEDILOL
     Route: 048
     Dates: start: 20131104
  42. NORCO [Concomitant]
     Active Substance: ACETAMINOPHEN\HYDROCODONE BITARTRATE
  43. PROMETHAZINE [Concomitant]
     Active Substance: PROMETHAZINE\PROMETHAZINE HYDROCHLORIDE
  44. LOPERAMIDE [Concomitant]
     Active Substance: LOPERAMIDE
  45. RANITIDINE. [Concomitant]
     Active Substance: RANITIDINE
  46. CALCITRIOL. [Concomitant]
     Active Substance: CALCITRIOL
  47. NEXIUM [Suspect]
     Active Substance: ESOMEPRAZOLE MAGNESIUM
     Indication: DYSPEPSIA
     Route: 048
     Dates: start: 20090616, end: 20150715
  48. NEXIUM [Suspect]
     Active Substance: ESOMEPRAZOLE MAGNESIUM
     Indication: GASTROOESOPHAGEAL REFLUX DISEASE
     Route: 048
     Dates: start: 20130928, end: 20131015
  49. KLONOPIN [Concomitant]
     Active Substance: CLONAZEPAM
  50. FUROSEMIDE. [Concomitant]
     Active Substance: FUROSEMIDE
     Route: 048
  51. LABETALOL [Concomitant]
     Active Substance: LABETALOL\LABETALOL HYDROCHLORIDE
  52. ACETAMINOPHEN. [Concomitant]
     Active Substance: ACETAMINOPHEN
  53. RESTORIL [Concomitant]
     Active Substance: TEMAZEPAM
  54. HYDROXYZINE [Concomitant]
     Active Substance: HYDROXYZINE HYDROCHLORIDE
     Dates: start: 20180802, end: 20181101
  55. NEXIUM [Suspect]
     Active Substance: ESOMEPRAZOLE MAGNESIUM
     Indication: DYSPEPSIA
     Route: 048
     Dates: start: 20130928, end: 20131015
  56. NEXIUM [Suspect]
     Active Substance: ESOMEPRAZOLE MAGNESIUM
     Indication: DYSPEPSIA
     Dosage: GENERIC
     Route: 048
  57. HYDROCODONE/ACETAMINOPHEN [Concomitant]
     Active Substance: ACETAMINOPHEN\HYDROCODONE
     Dosage: 5-325 UNKNOWN
     Dates: start: 20140408
  58. LEVOTHYROXINE. [Concomitant]
     Active Substance: LEVOTHYROXINE
  59. BYDUREON [Concomitant]
     Active Substance: EXENATIDE
     Dates: start: 20130120
  60. FLUOXETINE [Concomitant]
     Active Substance: FLUOXETINE HYDROCHLORIDE
  61. LEVOTHYROXINE. [Concomitant]
     Active Substance: LEVOTHYROXINE
  62. ZETIA [Concomitant]
     Active Substance: EZETIMIBE
  63. LISINOPRIL. [Concomitant]
     Active Substance: LISINOPRIL
     Dosage: 100 U, UNKNOWN
  64. REQUIP [Concomitant]
     Active Substance: ROPINIROLE HYDROCHLORIDE
     Dates: start: 2011
  65. CYMBALTA [Concomitant]
     Active Substance: DULOXETINE HYDROCHLORIDE
     Dates: start: 20131107
  66. PHENERGAN [Concomitant]
     Active Substance: PROMETHAZINE HYDROCHLORIDE
  67. NORVASC [Concomitant]
     Active Substance: AMLODIPINE BESYLATE
  68. DIVALPROEX [Concomitant]
     Active Substance: DIVALPROEX SODIUM
  69. MORPHINE [Concomitant]
     Active Substance: MORPHINE
  70. NIFEDIPINE. [Concomitant]
     Active Substance: NIFEDIPINE
  71. IBUPROFEN. [Concomitant]
     Active Substance: IBUPROFEN

REACTIONS (6)
  - Acute kidney injury [Unknown]
  - Chronic kidney disease [Not Recovered/Not Resolved]
  - Hyperparathyroidism secondary [Unknown]
  - Renal failure [Unknown]
  - Nephropathy [Recovered/Resolved]
  - Nephrogenic anaemia [Unknown]

NARRATIVE: CASE EVENT DATE: 20130928
